FAERS Safety Report 9491173 (Version 1)
Quarter: 2013Q3

REPORT INFORMATION
  Report Type: Spontaneous
  Country: GB (occurrence: GB)
  Receive Date: 20130830
  Receipt Date: 20130830
  Transmission Date: 20140515
  Serious: Yes (Other)
  Sender: FDA-Public Use
  Company Number: GB-BAUSCH-BL-2013-004700

PATIENT
  Sex: Male

DRUGS (1)
  1. MINIMS CYCLOPENTOLATE HYDROCHLORIDE 0.5% [Suspect]
     Indication: OPHTHALMOLOGICAL EXAMINATION
     Route: 047

REACTIONS (2)
  - Blindness transient [Recovered/Resolved]
  - Eye burns [Recovered/Resolved]
